FAERS Safety Report 5713056-0 (Version None)
Quarter: 2008Q2

REPORT INFORMATION
  Report Type: 
  Country: None (occurrence: None)
  Receive Date: 20080422
  Receipt Date: 20080325
  Transmission Date: 20081010
  Serious: Yes (Hospitalization)
  Sender: FDA-Public Use
  Company Number: NL-GENENTECH-258512

PATIENT
  Sex: Male

DRUGS (9)
  1. BEVACIZUMAB [Suspect]
     Indication: COLORECTAL CANCER
     Dosage: 640 UNK, UNK
     Route: 042
     Dates: start: 20060214
  2. CAPECITABINE [Suspect]
     Indication: COLORECTAL CANCER
     Dosage: 275 UNK, UNK
     Route: 048
     Dates: start: 20060214
  3. CAPECITABINE [Suspect]
     Dosage: 200 UNK, UNK
     Route: 048
  4. OXALIPLATIN [Suspect]
     Indication: COLORECTAL CANCER
     Dosage: 1000 UNK, UNK
     Route: 042
     Dates: start: 20060214
  5. OXALIPLATIN [Suspect]
     Dosage: 3000 UNK, UNK
     Route: 042
  6. CETUXIMAB [Concomitant]
     Indication: COLORECTAL CANCER
  7. BISOPROLOL FUMARATE [Concomitant]
     Indication: DRUG USE FOR UNKNOWN INDICATION
  8. ASPIRIN [Concomitant]
     Indication: DRUG USE FOR UNKNOWN INDICATION
  9. PRIADEL [Concomitant]
     Indication: DRUG USE FOR UNKNOWN INDICATION

REACTIONS (1)
  - OSTEONECROSIS [None]
